FAERS Safety Report 8150251-8 (Version None)
Quarter: 2012Q1

REPORT INFORMATION
  Report Type: 
  Country: None (occurrence: None)
  Receive Date: 20120220
  Receipt Date: 20120217
  Transmission Date: 20120608
  Serious: No
  Sender: FDA-Public Use
  Company Number: US-PFIZER INC-2012043582

PATIENT
  Sex: Female
  Weight: 58.957 kg

DRUGS (2)
  1. BENAZEPRIL [Concomitant]
     Dosage: 10 MG, UNK
  2. LIPITOR [Suspect]
     Indication: BLOOD CHOLESTEROL INCREASED
     Dosage: 20 MG, 1X/DAY
     Route: 048
     Dates: start: 20120207

REACTIONS (2)
  - FATIGUE [None]
  - FEELING ABNORMAL [None]
